FAERS Safety Report 8012000-3 (Version None)
Quarter: 2011Q4

REPORT INFORMATION
  Report Type: 
  Country: None (occurrence: None)
  Receive Date: 20111228
  Receipt Date: 20111111
  Transmission Date: 20120403
  Serious: Yes (Hospitalization)
  Sender: FDA-Public Use
  Company Number: IT-GLAXOSMITHKLINE-B0763062A

PATIENT
  Sex: Female

DRUGS (5)
  1. VALSARTAN  AND HYDROCHLOROTHIAZIDE [Concomitant]
     Route: 048
  2. BISOPROLOL FUMARATE [Concomitant]
     Dosage: 5MG PER DAY
  3. ENOXAPARIN SODIUM [Concomitant]
     Route: 030
  4. CARDICOR [Concomitant]
     Indication: ATRIAL FIBRILLATION
     Dosage: 5MG PER DAY
     Route: 048
  5. LANOXIN [Suspect]
     Indication: ATRIAL FIBRILLATION
     Dosage: 1.5MG PER DAY
     Route: 065
     Dates: start: 20111105, end: 20111106

REACTIONS (5)
  - NAUSEA [None]
  - DIZZINESS [None]
  - TOXICITY TO VARIOUS AGENTS [None]
  - COLOUR BLINDNESS [None]
  - VOMITING [None]
